FAERS Safety Report 14871472 (Version 1)
Quarter: 2018Q2

REPORT INFORMATION
  Report Type: Report from Study
  Country: US (occurrence: US)
  Receive Date: 20180509
  Receipt Date: 20180509
  Transmission Date: 20180711
  Serious: Yes (Death)
  Sender: FDA-Public Use
  Company Number: US-MYLANLABS-2018M1030137

PATIENT
  Sex: Female

DRUGS (4)
  1. DOCETAXEL. [Suspect]
     Active Substance: DOCETAXEL
     Indication: BREAST CANCER METASTATIC
     Dosage: ON DAY 1
     Route: 065
  2. TRASTUZUMAB. [Suspect]
     Active Substance: TRASTUZUMAB
     Dosage: OVER 30 MINUTES ON DAYS 1, 8, AND 15.
     Route: 065
  3. TRASTUZUMAB. [Suspect]
     Active Substance: TRASTUZUMAB
     Indication: BREAST CANCER METASTATIC
     Dosage: FIRST DOSE OF TRASTUZUMAB CONSISTED OF 4 MG/KG OVER 90 MINUTES ON DAY 1.
     Route: 065
  4. CARBOPLATIN. [Suspect]
     Active Substance: CARBOPLATIN
     Indication: BREAST CANCER METASTATIC
     Dosage: RECEIVED ONE CYCLE AT AREA UNDER THE SERUM CONCENTRATION-TIME CURVE 6 MG/ML/MIN OVER 30 TO 60 MIN...
     Route: 065

REACTIONS (4)
  - Sepsis [Fatal]
  - Neutropenic infection [Fatal]
  - Enteritis infectious [Fatal]
  - Enterocolitis infectious [Fatal]
